FAERS Safety Report 8010409-5 (Version None)
Quarter: 2011Q4

REPORT INFORMATION
  Report Type: 
  Country: None (occurrence: None)
  Receive Date: 20111222
  Receipt Date: 20111212
  Transmission Date: 20120403
  Serious: Yes (Death)
  Sender: FDA-Public Use
  Company Number: 2011P1014204

PATIENT
  Sex: Male

DRUGS (3)
  1. FENTANYL [Suspect]
     Dates: start: 20110101, end: 20110101
  2. FENTANYL [Suspect]
     Dates: start: 20110601, end: 20110101
  3. FENTANYL [Suspect]
     Dates: start: 20110101, end: 20110101

REACTIONS (1)
  - DEATH [None]
